FAERS Safety Report 4645737-4 (Version None)
Quarter: 2005Q2

REPORT INFORMATION
  Report Type: 
  Country: None (occurrence: None)
  Receive Date: 20050425
  Receipt Date: 20050412
  Transmission Date: 20051028
  Serious: Yes (Other)
  Sender: FDA-Public Use
  Company Number: 2005059634

PATIENT
  Age: 50 Year
  Sex: Male
  Weight: 104.3273 kg

DRUGS (2)
  1. GENOTROPIN [Suspect]
     Indication: COMPLEX REGIONAL PAIN SYNDROME
     Dosage: SEE IMAGE
     Dates: start: 20010501
  2. CELEBREX [Suspect]
     Indication: COMPLEX REGIONAL PAIN SYNDROME
     Dosage: 400 MG (400 MG MG, EVERY 2-3DAYS, AS NEEDED), ORAL
     Route: 048

REACTIONS (3)
  - DRUG DOSE OMISSION [None]
  - PERIARTHRITIS [None]
  - PHARMACEUTICAL PRODUCT COMPLAINT [None]
